FAERS Safety Report 4815039-1 (Version None)
Quarter: 2005Q4

REPORT INFORMATION
  Report Type: 
  Country: None (occurrence: None)
  Receive Date: 20051026
  Receipt Date: 20051007
  Transmission Date: 20060501
  Serious: Yes (Hospitalization)
  Sender: FDA-Public Use
  Company Number: CA_050908721

PATIENT
  Age: 83 Year
  Sex: Female

DRUGS (14)
  1. FORTEO [Suspect]
     Indication: OSTEOPOROSIS
     Dosage: 20 UG DAY
     Dates: start: 20050503, end: 20050924
  2. ACETYLSALICYLIC ACID SRT [Concomitant]
  3. PANTOPRAZOLE SODIUM [Concomitant]
  4. MORPHINE [Concomitant]
  5. TYLENOL W/ CODEINE NO. 3 [Concomitant]
  6. LASIX [Concomitant]
  7. ALTACE [Concomitant]
  8. FOLIC ACID [Concomitant]
  9. PREDNISONE [Concomitant]
  10. PLAQUINOL (HYDROXYCHLOROQUINE SULFATE) [Concomitant]
  11. CALCIUM GLUCONATE [Concomitant]
  12. VITAMIN D [Concomitant]
  13. METHOTREXATE [Concomitant]
  14. MULTIVITAMINS NOS (MULTIVITAMINS NOS) [Concomitant]

REACTIONS (4)
  - ABDOMINAL PAIN [None]
  - ARTHRALGIA [None]
  - CANDIDIASIS [None]
  - PAIN IN EXTREMITY [None]
